FAERS Safety Report 25471070 (Version 2)
Quarter: 2025Q3

REPORT INFORMATION
  Report Type: Report from Study
  Country: US (occurrence: US)
  Receive Date: 20250624
  Receipt Date: 20250915
  Transmission Date: 20251020
  Serious: No
  Sender: ACADIA PHARMACEUTICALS
  Company Number: US-ACADIA PHARMACEUTICALS INC.-ACA-2025-PIM-007277

PATIENT
  Sex: Female

DRUGS (15)
  1. NUPLAZID [Suspect]
     Active Substance: PIMAVANSERIN TARTRATE
     Indication: Parkinson^s disease psychosis
     Dosage: 34 MILLIGRAM, QD
     Route: 048
     Dates: start: 20250204
  2. AMANTADINE [Concomitant]
     Active Substance: AMANTADINE
  3. ASPIRIN [Concomitant]
     Active Substance: ASPIRIN
  4. CALTRATE WITH VITAMIN D [Concomitant]
     Active Substance: CALCIUM CARBONATE\CHOLECALCIFEROL
  5. COLCHICINE [Concomitant]
     Active Substance: COLCHICINE
  6. FISH OIL [Concomitant]
     Active Substance: FISH OIL
  7. LEVOTHYROXINE [Concomitant]
     Active Substance: LEVOTHYROXINE
  8. MECLIZINE [Concomitant]
     Active Substance: MECLIZINE HYDROCHLORIDE
  9. MELATONIN [Concomitant]
     Active Substance: MELATONIN
  10. MOVE FREE ADVANCED [Concomitant]
  11. MYRBETRIQ [Concomitant]
     Active Substance: MIRABEGRON
  12. REPATHA [Concomitant]
     Active Substance: EVOLOCUMAB
  13. RYTARY [Concomitant]
     Active Substance: CARBIDOPA\LEVODOPA
  14. VITAMIN C [Concomitant]
     Active Substance: ASCORBIC ACID
  15. VITAMIN D2 [Concomitant]
     Active Substance: ERGOCALCIFEROL

REACTIONS (1)
  - Confusional state [Unknown]
